FAERS Safety Report 6436900-0 (Version None)
Quarter: 2009Q4

REPORT INFORMATION
  Report Type: 
  Country: None (occurrence: None)
  Receive Date: 20091109
  Receipt Date: 20091030
  Transmission Date: 20100525
  Serious: No
  Sender: FDA-Public Use
  Company Number: 2009011982

PATIENT
  Sex: Male

DRUGS (1)
  1. FENTORA [Suspect]
     Indication: CANCER PAIN
     Dosage: (200 MCG, 1 EVERY THREE TO FIVE HOURS.), BU; (600 MCG, 1 EVERY THREE TO FIVE HOURS.), BU
     Route: 002
     Dates: start: 20080101

REACTIONS (2)
  - DRUG PRESCRIBING ERROR [None]
  - SKIN EXFOLIATION [None]
